FAERS Safety Report 19792679 (Version 2)
Quarter: 2021Q4

REPORT INFORMATION
  Report Type: Spontaneous
  Country: CO (occurrence: CO)
  Receive Date: 20210906
  Receipt Date: 20211211
  Transmission Date: 20220303
  Serious: Yes (Disabling)
  Sender: FDA-Public Use
  Company Number: CO-002147023-NVSC2021CO195958

PATIENT
  Sex: Female
  Weight: 81 kg

DRUGS (3)
  1. XOLAIR [Suspect]
     Active Substance: OMALIZUMAB
     Indication: Asthma
     Dosage: 300 MG, QMO (STARTED 4 YEARS AGO)
     Route: 058
  2. ACLASTA [Concomitant]
     Active Substance: ZOLEDRONIC ACID
     Indication: Osteoporosis
     Dosage: Q12MO (EVERY YEAR)
     Route: 042
  3. METFORMIN [Concomitant]
     Active Substance: METFORMIN HYDROCHLORIDE
     Indication: Diabetes mellitus
     Dosage: UNK UNK, BID

REACTIONS (3)
  - Walking disability [Recovered/Resolved]
  - Pain [Unknown]
  - Therapeutic response unexpected [Unknown]
